FAERS Safety Report 15142365 (Version 1)
Quarter: 2018Q3

REPORT INFORMATION
  Report Type: Spontaneous
  Country: US (occurrence: US)
  Receive Date: 20180713
  Receipt Date: 20180713
  Transmission Date: 20181010
  Serious: No
  Sender: FDA-Public Use
  Company Number: US-SHIRE-US201825393

PATIENT
  Age: 56 Year
  Sex: Male
  Weight: 63.49 kg

DRUGS (2)
  1. XIIDRA [Suspect]
     Active Substance: LIFITEGRAST
     Indication: DRY EYE
     Dosage: 1 GTT, 2X/DAY:BID
     Route: 047
     Dates: start: 20170928, end: 201805
  2. CHOLESTYRAMINE. [Concomitant]
     Active Substance: CHOLESTYRAMINE
     Indication: BLOOD CHOLESTEROL INCREASED
     Route: 048

REACTIONS (9)
  - Foreign body in eye [Recovered/Resolved]
  - Skin tightness [Recovered/Resolved]
  - Instillation site swelling [Recovered/Resolved]
  - Instillation site pruritus [Recovered/Resolved]
  - Injury [Recovered/Resolved]
  - Abnormal sensation in eye [Recovered/Resolved]
  - Instillation site inflammation [Recovered/Resolved]
  - Instillation site pain [Recovered/Resolved]
  - Dry eye [Recovered/Resolved]

NARRATIVE: CASE EVENT DATE: 20171104
